FAERS Safety Report 6223576-0 (Version None)
Quarter: 2009Q2

REPORT INFORMATION
  Report Type: 
  Country: None (occurrence: None)
  Receive Date: 20090610
  Receipt Date: 20090601
  Transmission Date: 20091009
  Serious: Yes (Hospitalization, Other)
  Sender: FDA-Public Use
  Company Number: ADE2009-0649

PATIENT
  Age: 49 Year
  Sex: Male

DRUGS (2)
  1. PAROXETINE HCL [Suspect]
     Indication: DEPRESSION
     Dosage: 20MG, DAILY
     Dates: start: 20070401
  2. DULOXETINE HYDROCHLORIDE [Suspect]
     Indication: DEPRESSION
     Dosage: 60MG, DAILY
     Dates: start: 20060701

REACTIONS (9)
  - AGITATION [None]
  - ANOREXIA [None]
  - CHILLS [None]
  - FAECAL INCONTINENCE [None]
  - HYPERHIDROSIS [None]
  - LACK OF SPONTANEOUS SPEECH [None]
  - MYOCLONIC EPILEPSY [None]
  - MYOCLONUS [None]
  - URINARY INCONTINENCE [None]
